FAERS Safety Report 11382116 (Version 1)
Quarter: 2015Q3

REPORT INFORMATION
  Report Type: Spontaneous
  Country: US (occurrence: US)
  Receive Date: 20150811
  Receipt Date: 20150811
  Transmission Date: 20151125
  Serious: Yes (Disabling)
  Sender: FDA-Public Use
  Company Number: US-ELI_LILLY_AND_COMPANY-US200912006074

PATIENT
  Age: 59 Year
  Sex: Male

DRUGS (4)
  1. CIALIS [Suspect]
     Active Substance: TADALAFIL
     Indication: ERECTILE DYSFUNCTION
     Dosage: 20 MG, AS NEEDED
     Route: 065
  2. PARACETAMOL [Concomitant]
     Active Substance: ACETAMINOPHEN
  3. LIPITOR [Concomitant]
     Active Substance: ATORVASTATIN CALCIUM
  4. AVODART [Concomitant]
     Active Substance: DUTASTERIDE
     Indication: PROSTATOMEGALY

REACTIONS (2)
  - Back pain [Recovered/Resolved]
  - Product label confusion [Unknown]

NARRATIVE: CASE EVENT DATE: 20091226
